FAERS Safety Report 13822627 (Version 1)
Quarter: 2017Q3

REPORT INFORMATION
  Report Type: Spontaneous
  Country: FR (occurrence: FR)
  Receive Date: 20170801
  Receipt Date: 20170801
  Transmission Date: 20171127
  Serious: Yes (Other)
  Sender: FDA-Public Use
  Company Number: FR-ABBVIE-17P-056-2058051-00

PATIENT
  Age: 7 Year
  Sex: Female

DRUGS (1)
  1. MICROPAKINE [Suspect]
     Active Substance: VALPROIC ACID
     Indication: EPILEPSY
     Route: 065
     Dates: start: 2009

REACTIONS (6)
  - Epilepsy [Unknown]
  - Abnormal behaviour [Unknown]
  - Skin reaction [Unknown]
  - Affective disorder [Unknown]
  - Poisoning [Unknown]
  - Abnormal behaviour [Unknown]

NARRATIVE: CASE EVENT DATE: 200903
